FAERS Safety Report 18779918 (Version 1)
Quarter: 2021Q1

REPORT INFORMATION
  Report Type: Report from Study
  Country: None (occurrence: US)
  Receive Date: 20210125
  Receipt Date: 20210125
  Transmission Date: 20210419
  Serious: Yes (Death)
  Sender: FDA-Public Use
  Company Number: US-ABBVIE-21K-163-3743275-00

PATIENT
  Sex: Female
  Weight: 66.74 kg

DRUGS (1)
  1. CREON [Suspect]
     Active Substance: PANCRELIPASE AMYLASE\PANCRELIPASE LIPASE\PANCRELIPASE PROTEASE
     Indication: PANCREATIC CARCINOMA STAGE IV
     Dosage: ONE CAPSULE THREE TIMES A DAY WITH MEAL
     Route: 048
     Dates: start: 202011

REACTIONS (1)
  - Cardiac neoplasm malignant [Fatal]

NARRATIVE: CASE EVENT DATE: 2020
